FAERS Safety Report 8317871-9 (Version None)
Quarter: 2012Q2

REPORT INFORMATION
  Report Type: 
  Country: None (occurrence: None)
  Receive Date: 20120427
  Receipt Date: 20120417
  Transmission Date: 20120825
  Serious: Yes (Other)
  Sender: FDA-Public Use
  Company Number: US-ELI_LILLY_AND_COMPANY-US201202006307

PATIENT
  Age: 75 Year
  Sex: Female

DRUGS (2)
  1. FORTEO [Suspect]
     Dosage: 20 UG, QD
     Route: 065
  2. FORTEO [Suspect]
     Indication: OSTEOPOROSIS
     Dosage: 20 UG, QD
     Route: 065

REACTIONS (10)
  - FALL [None]
  - MUSCULOSKELETAL STIFFNESS [None]
  - INCORRECT STORAGE OF DRUG [None]
  - PELVIC FRACTURE [None]
  - HEAD INJURY [None]
  - ARTHRITIS [None]
  - PAIN [None]
  - NECK INJURY [None]
  - NECK PAIN [None]
  - HIP ARTHROPLASTY [None]
